FAERS Safety Report 8316419-2 (Version None)
Quarter: 2012Q2

REPORT INFORMATION
  Report Type: 
  Country: None (occurrence: None)
  Receive Date: 20120427
  Receipt Date: 20120416
  Transmission Date: 20120825
  Serious: Yes (Death, Hospitalization, Other)
  Sender: FDA-Public Use
  Company Number: CO-AMGEN-COLSP2012025206

PATIENT
  Age: 33 Year
  Sex: Female

DRUGS (12)
  1. JADELLE [Concomitant]
     Indication: CONTRACEPTION
     Dosage: UNK
  2. METHOTREXATE [Concomitant]
     Dosage: 15 MG, WEEKLY
     Dates: start: 20110701, end: 20111201
  3. PREDNISOLONE [Concomitant]
     Dosage: 15 MG, 1X/DAY
     Dates: start: 20120101
  4. CHLOROQUINE PHOSPHATE [Concomitant]
     Dosage: UNK
     Dates: start: 20110701
  5. ENBREL [Suspect]
     Indication: PRODUCT USED FOR UNKNOWN INDICATION
     Dosage: 25 MG, 2X/WEEK
     Route: 058
     Dates: start: 20120206, end: 20120221
  6. PREDNISOLONE [Concomitant]
     Indication: SJOGREN'S SYNDROME
     Dosage: 10 MG, 1X/DAY
     Dates: start: 20110401, end: 20110701
  7. ACETAMINOPHEN [Concomitant]
     Indication: RHEUMATOID ARTHRITIS
     Dosage: UNK
     Dates: start: 20110401
  8. FOLIC ACID [Concomitant]
     Indication: RHEUMATOID ARTHRITIS
     Dosage: UNK
     Dates: start: 20110401
  9. METHOTREXATE [Concomitant]
     Dosage: 10 MG, WEEKLY
     Dates: start: 20111201
  10. CALCIUM [Concomitant]
     Indication: RHEUMATOID ARTHRITIS
     Dosage: UNK
     Dates: start: 20110401
  11. METHOTREXATE [Concomitant]
     Indication: SJOGREN'S SYNDROME
     Dosage: 10 MG, WEEKLY
     Dates: start: 20110401, end: 20110701
  12. PREDNISOLONE [Concomitant]
     Dosage: 5 MG, 1X/DAY
     Dates: start: 20110701, end: 20120101

REACTIONS (3)
  - MULTI-ORGAN FAILURE [None]
  - STEVENS-JOHNSON SYNDROME [None]
  - INFECTION [None]
